FAERS Safety Report 23273449 (Version 2)
Quarter: 2024Q1

REPORT INFORMATION
  Report Type: Spontaneous
  Country: US (occurrence: US)
  Receive Date: 20231207
  Receipt Date: 20240103
  Transmission Date: 20240410
  Serious: Yes (Death, Hospitalization, Other)
  Sender: FDA-Public Use
  Company Number: US-SEATTLE GENETICS-2023SGN12898

PATIENT
  Sex: Male

DRUGS (2)
  1. TUKYSA [Suspect]
     Active Substance: TUCATINIB
     Indication: HER2 positive colorectal cancer
     Dosage: UNK
     Route: 065
     Dates: start: 20230607, end: 20230929
  2. OXYCODONE [Concomitant]
     Active Substance: OXYCODONE
     Dosage: 5 MG PRN
     Route: 065

REACTIONS (4)
  - Cardiac arrest [Fatal]
  - Rectal abscess [Fatal]
  - Fournier^s gangrene [Fatal]
  - Septic shock [Fatal]
